FAERS Safety Report 4327860-7 (Version None)
Quarter: 2004Q1

REPORT INFORMATION
  Report Type: 
  Country: None (occurrence: None)
  Receive Date: 20040325
  Receipt Date: 20040311
  Transmission Date: 20041129
  Serious: Yes (Hospitalization)
  Sender: FDA-Public Use
  Company Number: ZONI001356

PATIENT
  Age: 35 Year
  Sex: Male

DRUGS (5)
  1. EXCEGRAN (ZONISAMIDE) [Suspect]
     Indication: CONVULSION PROPHYLAXIS
     Dosage: 200 MG DAILY ORAL
     Route: 048
     Dates: start: 20030303, end: 20030811
  2. NIDRAN (NIMUSTINE HYDROCHLORIDE) [Concomitant]
  3. ONCOVIN [Concomitant]
  4. NATULAN (PROCARBAZINE) [Concomitant]
  5. LEVOFLOXACIN [Concomitant]

REACTIONS (2)
  - INTERSTITIAL LUNG DISEASE [None]
  - PYREXIA [None]
